FAERS Safety Report 22384239 (Version 2)
Quarter: 2023Q2

REPORT INFORMATION
  Report Type: Spontaneous
  Country: FR (occurrence: FR)
  Receive Date: 20230530
  Receipt Date: 20230531
  Transmission Date: 20230721
  Serious: Yes (Other)
  Sender: FDA-Public Use
  Company Number: FR-009507513-2305FRA009262

PATIENT
  Age: 64 Year
  Sex: Female

DRUGS (1)
  1. KEYTRUDA [Suspect]
     Active Substance: PEMBROLIZUMAB
     Indication: Triple negative breast cancer
     Dosage: 200 MILLIGRAM, Q3W

REACTIONS (5)
  - Intracardiac thrombus [Unknown]
  - Central venous catheterisation [Unknown]
  - Therapy partial responder [Unknown]
  - Catheter site inflammation [Unknown]
  - Adverse event [Unknown]
